FAERS Safety Report 25974019 (Version 3)
Quarter: 2025Q4

REPORT INFORMATION
  Report Type: Spontaneous
  Country: US (occurrence: US)
  Receive Date: 20251029
  Receipt Date: 20251120
  Transmission Date: 20260118
  Serious: No
  Sender: LUPIN
  Company Number: US-LUPIN EUROPE GMBH-2025-09615

PATIENT
  Age: 85 Year

DRUGS (5)
  1. QUETIAPINE [Suspect]
     Active Substance: QUETIAPINE
     Indication: Bipolar disorder
     Dosage: 300 MG, HS (ONCE AT NIGHT)
  2. QUETIAPINE [Suspect]
     Active Substance: QUETIAPINE
     Indication: Affective disorder
  3. QUETIAPINE [Suspect]
     Active Substance: QUETIAPINE
     Indication: Sleep disorder
  4. CLOBETASOL [Concomitant]
     Active Substance: CLOBETASOL
     Indication: Vaginal disorder
     Dosage: UNK
     Route: 065
  5. Astodol [Concomitant]
     Indication: Dry skin
     Dosage: UNK
     Route: 065

REACTIONS (7)
  - Choking sensation [Unknown]
  - Dry mouth [Unknown]
  - Constipation [Unknown]
  - Somnolence [Unknown]
  - Dry eye [Unknown]
  - Dysphagia [Unknown]
  - Tooth disorder [Unknown]
